FAERS Safety Report 9091066 (Version 1)
Quarter: 2013Q1

REPORT INFORMATION
  Report Type: Report from Study
  Country: US (occurrence: US)
  Receive Date: 20130131
  Receipt Date: 20130131
  Transmission Date: 20140127
  Serious: No
  Sender: FDA-Public Use
  Company Number: US-ABBOTT-12P-163-1011485-00

PATIENT
  Sex: Female

DRUGS (1)
  1. HUMIRA [Suspect]
     Indication: PRODUCT USED FOR UNKNOWN INDICATION
     Dosage: STARTING TWO WEEKS AFTER LAST DOSE
     Route: 058
     Dates: start: 20120822

REACTIONS (4)
  - Bronchitis [Unknown]
  - Pneumonia [Unknown]
  - Ear infection [Unknown]
  - Pharyngitis streptococcal [Unknown]
